FAERS Safety Report 5077956-X (Version None)
Quarter: 2006Q3

REPORT INFORMATION
  Report Type: 
  Country: None (occurrence: None)
  Receive Date: 20060811
  Receipt Date: 20060802
  Transmission Date: 20061208
  Serious: Yes (Other)
  Sender: FDA-Public Use
  Company Number: PHBS2006JP11814

PATIENT
  Age: 35 Year
  Sex: Female

DRUGS (2)
  1. VOLTAREN [Suspect]
     Indication: NASOPHARYNGITIS
     Route: 048
  2. LEVOFLOXACIN [Suspect]
     Route: 048

REACTIONS (2)
  - CONVULSION [None]
  - DRUG INTERACTION [None]
